FAERS Safety Report 13157288 (Version 2)
Quarter: 2017Q1

REPORT INFORMATION
  Report Type: Report from Study
  Country: JP (occurrence: JP)
  Receive Date: 20170127
  Receipt Date: 20170217
  Transmission Date: 20170428
  Serious: Yes (Hospitalization, Other)
  Sender: FDA-Public Use
  Company Number: JP-AMGEN-JPNSP2017013780

PATIENT
  Age: 50 Year
  Sex: Male

DRUGS (5)
  1. CINACALCET HCL [Suspect]
     Active Substance: CINACALCET HYDROCHLORIDE
     Indication: HYPERPARATHYROIDISM SECONDARY
     Dosage: 25 MG, QD
     Route: 048
     Dates: start: 20160118, end: 20160207
  2. CINACALCET HCL [Suspect]
     Active Substance: CINACALCET HYDROCHLORIDE
     Dosage: 75 MG, QD
     Route: 048
     Dates: start: 20160229, end: 20160315
  3. CINACALCET HCL [Suspect]
     Active Substance: CINACALCET HYDROCHLORIDE
     Dosage: 62.5 MG, QD
     Route: 048
     Dates: start: 20160328, end: 20160807
  4. CINACALCET HCL [Suspect]
     Active Substance: CINACALCET HYDROCHLORIDE
     Dosage: 37.5 MG, QD
     Route: 048
     Dates: start: 20160808
  5. CINACALCET HCL [Suspect]
     Active Substance: CINACALCET HYDROCHLORIDE
     Dosage: 50 MG, QD
     Route: 048
     Dates: start: 20160208, end: 20160228

REACTIONS (6)
  - Shunt stenosis [Recovered/Resolved]
  - Enteritis infectious [Recovered/Resolved]
  - Nasopharyngitis [Recovered/Resolved]
  - Nasopharyngitis [Recovered/Resolved]
  - Adjusted calcium decreased [Recovered/Resolved]
  - Chest pain [Recovered/Resolved]

NARRATIVE: CASE EVENT DATE: 20160127
